FAERS Safety Report 4493629-6 (Version None)
Quarter: 2004Q4

REPORT INFORMATION
  Report Type: 
  Country: None (occurrence: None)
  Receive Date: 20041102
  Receipt Date: 20041019
  Transmission Date: 20050328
  Serious: Yes (Hospitalization, Other)
  Sender: FDA-Public Use
  Company Number: USA040874319

PATIENT
  Age: 73 Year
  Sex: Female
  Weight: 66 kg

DRUGS (17)
  1. FORTEO [Suspect]
     Indication: OSTEOPOROSIS
     Dosage: 20 UG DAY
     Dates: start: 20040201
  2. ATACAND [Concomitant]
  3. FUROSEMIDE [Concomitant]
  4. ISMO [Concomitant]
  5. ALDACTONE [Concomitant]
  6. SYNTHROID [Concomitant]
  7. CONJUGATED ESTROGEN [Concomitant]
  8. ZYRTEC [Concomitant]
  9. NEXIUM [Concomitant]
  10. MULTIVITAMINS NOS (MULTIVITAMINS NOS) [Concomitant]
  11. POTASSIUM CHLORIDE [Concomitant]
  12. MOBIC [Concomitant]
  13. MAGNESIUM CHLORIDE [Concomitant]
  14. COLCHICINE [Concomitant]
  15. PLAQUENIL [Concomitant]
  16. PROBENECID [Concomitant]
  17. CALCIUM CARBONATE W/VITAMIN D NOS [Concomitant]

REACTIONS (12)
  - BLOOD CALCIUM INCREASED [None]
  - CHEST DISCOMFORT [None]
  - CHEST PAIN [None]
  - COMA [None]
  - CONTUSION [None]
  - FALL [None]
  - HEART RATE INCREASED [None]
  - INJECTION SITE DISCOLOURATION [None]
  - PHARMACEUTICAL PRODUCT COMPLAINT [None]
  - POST PROCEDURAL COMPLICATION [None]
  - ROTATOR CUFF SYNDROME [None]
  - SYNCOPE [None]
